FAERS Safety Report 5642867-5 (Version None)
Quarter: 2008Q1

REPORT INFORMATION
  Report Type: 
  Country: None (occurrence: None)
  Receive Date: 20080228
  Receipt Date: 20080219
  Transmission Date: 20080703
  Serious: Yes (Other)
  Sender: FDA-Public Use
  Company Number: PHBS2007JP19103

PATIENT
  Age: 85 Year
  Sex: Male
  Weight: 66 kg

DRUGS (5)
  1. ZOMETA [Suspect]
     Indication: MULTIPLE MYELOMA
     Dosage: 4 MG, QMO
     Route: 042
     Dates: start: 20070215, end: 20071001
  2. MELPHALAN [Concomitant]
     Indication: MULTIPLE MYELOMA
     Dates: start: 20070112
  3. PREDNISOLONE [Concomitant]
     Dates: start: 20070112
  4. GASLON [Concomitant]
     Route: 048
     Dates: start: 20070112
  5. LOXONIN [Concomitant]
     Route: 048
     Dates: start: 20070201, end: 20071001

REACTIONS (4)
  - BONE INFARCTION [None]
  - NUCLEAR MAGNETIC RESONANCE IMAGING ABNORMAL [None]
  - OSTEONECROSIS [None]
  - PAIN IN EXTREMITY [None]
